FAERS Safety Report 24183419 (Version 1)
Quarter: 2024Q3

REPORT INFORMATION
  Report Type: Spontaneous
  Country: US (occurrence: None)
  Receive Date: 20240806
  Receipt Date: 20240806
  Transmission Date: 20241017
  Serious: Yes (unspecified)
  Sender: Public
  Company Number: None

PATIENT
  Age: 55 Year
  Sex: Female
  Weight: 56 kg

DRUGS (1)
  1. FENTANYL [Suspect]
     Active Substance: FENTANYL\FENTANYL CITRATE
     Indication: Head injury
     Dosage: OTHER QUANTITY : 50MCG/ML;?FREQUENCY : ONCE;?
     Route: 042

REACTIONS (2)
  - Oxygen saturation decreased [None]
  - Apnoea [None]

NARRATIVE: CASE EVENT DATE: 20240805
